FAERS Safety Report 20645832 (Version 3)
Quarter: 2022Q3

REPORT INFORMATION
  Report Type: Report from Study
  Country: JP (occurrence: JP)
  Receive Date: 20220329
  Receipt Date: 20220904
  Transmission Date: 20221027
  Serious: Yes (Hospitalization, Other)
  Sender: FDA-Public Use
  Company Number: JP-SA-2022SA102394

PATIENT
  Age: 74 Year
  Sex: Male
  Weight: 61 kg

DRUGS (10)
  1. DUPILUMAB [Suspect]
     Active Substance: DUPILUMAB
     Indication: Asthma
     Dosage: 300 MG, QOW
     Route: 058
     Dates: start: 20200108, end: 20200304
  2. DUPILUMAB [Suspect]
     Active Substance: DUPILUMAB
     Dosage: 600 MG, 1X
     Route: 058
     Dates: start: 20191204, end: 20191204
  3. DUPILUMAB [Suspect]
     Active Substance: DUPILUMAB
     Dosage: 300 MG, 1X
     Route: 058
     Dates: start: 20191218, end: 20191218
  4. ALVESCO [Concomitant]
     Active Substance: CICLESONIDE
     Indication: Asthma
     Dosage: DAILY DOSAGE: 2.00 INHALATIONS
     Route: 055
     Dates: start: 20191112
  5. TRELEGY ELLIPTA [Concomitant]
     Active Substance: FLUTICASONE FUROATE\UMECLIDINIUM BROMIDE\VILANTEROL TRIFENATATE
     Indication: Asthma
     Dosage: DAILY DOSAGE: 1.00 INHALATION
     Route: 055
  6. MONTELUKAST SODIUM [Concomitant]
     Active Substance: MONTELUKAST SODIUM
     Indication: Asthma
     Dosage: DAILY DOSAGE: 10.00 MG, SEVERAL TIMES A DAY
     Route: 048
  7. THEOPHYLLINE [Concomitant]
     Active Substance: THEOPHYLLINE
     Indication: Asthma
     Dosage: DAILY DOSAGE: 400.00 MG, SEVERAL TIMES A DAY
     Route: 048
  8. LINAGLIPTIN [Concomitant]
     Active Substance: LINAGLIPTIN
     Indication: Diabetes mellitus
     Dosage: DAILY DOSAGE: 5.00 MG, SEVERAL TIMES A DAY
     Route: 065
  9. FLUNITRAZEPAM [Concomitant]
     Active Substance: FLUNITRAZEPAM
     Indication: Product used for unknown indication
     Dosage: DAILY DOSAGE: 2.00 MG, SEVERAL TIMES A DAY
     Route: 065
  10. CRESTOR [Concomitant]
     Active Substance: ROSUVASTATIN CALCIUM
     Indication: Product used for unknown indication
     Dosage: DAILY DOSAGE: 2.50 MG, SEVERAL TIMES A DAY
     Route: 065

REACTIONS (3)
  - Eosinophilic pneumonia [Recovering/Resolving]
  - Respiratory symptom [Recovering/Resolving]
  - Condition aggravated [Recovering/Resolving]

NARRATIVE: CASE EVENT DATE: 20200305
